FAERS Safety Report 9550515 (Version 1)
Quarter: 2013Q3

REPORT INFORMATION
  Report Type: Spontaneous
  Country: US (occurrence: US)
  Receive Date: 20130924
  Receipt Date: 20130924
  Transmission Date: 20140515
  Serious: No
  Sender: FDA-Public Use
  Company Number: US-SANOFI-AVENTIS-2013SA026336

PATIENT
  Age: 45 Year
  Sex: Female
  Weight: 68 kg

DRUGS (9)
  1. AUBAGIO [Suspect]
     Indication: MULTIPLE SCLEROSIS
     Route: 048
     Dates: start: 20130213
  2. AUBAGIO [Suspect]
     Indication: MULTIPLE SCLEROSIS
     Route: 048
     Dates: start: 20130213
  3. BACLOFEN [Concomitant]
  4. AMANTADINE [Concomitant]
  5. MULTIVITAMINS [Concomitant]
  6. VITAMIN D [Concomitant]
     Dosage: DOSE:5000 UNIT(S)
     Dates: start: 20130604
  7. VITAMIN C [Concomitant]
  8. COLACE [Concomitant]
  9. TYLENOL [Concomitant]

REACTIONS (12)
  - Abdominal pain upper [Not Recovered/Not Resolved]
  - Urticaria [Unknown]
  - Pruritus [Unknown]
  - Muscle spasms [Not Recovered/Not Resolved]
  - Faeces soft [Not Recovered/Not Resolved]
  - Feeling abnormal [Not Recovered/Not Resolved]
  - Gastroenteritis viral [Not Recovered/Not Resolved]
  - Frequent bowel movements [Not Recovered/Not Resolved]
  - Nausea [Not Recovered/Not Resolved]
  - Diarrhoea [Unknown]
  - Alopecia [Not Recovered/Not Resolved]
  - Drug dose omission [Unknown]
